FAERS Safety Report 16905645 (Version 1)
Quarter: 2019Q4

REPORT INFORMATION
  Report Type: Spontaneous
  Country: FI (occurrence: FI)
  Receive Date: 20191010
  Receipt Date: 20191010
  Transmission Date: 20200122
  Serious: Yes (Other)
  Sender: FDA-Public Use
  Company Number: FI-REGENERON PHARMACEUTICALS, INC.-2019-47634

PATIENT

DRUGS (2)
  1. EYLEA [Suspect]
     Active Substance: AFLIBERCEPT
     Dosage: LAST DOSE PRIOR TO EVENT
     Dates: start: 20190129, end: 20190129
  2. EYLEA [Suspect]
     Active Substance: AFLIBERCEPT
     Indication: DIABETIC RETINAL OEDEMA
     Dosage: TOTAL OF EIGHT DOSES PRIOR TO EVENT - OU.

REACTIONS (4)
  - Blindness unilateral [Recovering/Resolving]
  - Endophthalmitis [Recovering/Resolving]
  - Wrong technique in product usage process [Unknown]
  - Multiple use of single-use product [Unknown]

NARRATIVE: CASE EVENT DATE: 20190201
